FAERS Safety Report 6134127-3 (Version None)
Quarter: 2009Q1

REPORT INFORMATION
  Report Type: 
  Country: None (occurrence: None)
  Receive Date: 20090326
  Receipt Date: 20090311
  Transmission Date: 20090719
  Serious: Yes (Hospitalization)
  Sender: FDA-Public Use
  Company Number: FR-GENENTECH-279718

PATIENT
  Age: 70 Year
  Sex: Female

DRUGS (9)
  1. LUCENTIS [Suspect]
     Indication: MACULAR DEGENERATION
     Dosage: UNK
     Dates: start: 20081121
  2. LUCENTIS [Suspect]
     Dosage: UNK
     Dates: start: 20081223
  3. LUCENTIS [Suspect]
     Dosage: UNK
     Dates: start: 20090128
  4. ESOMEPRAZOLE [Concomitant]
     Indication: DRUG USE FOR UNKNOWN INDICATION
  5. ACETAMINOPHEN [Concomitant]
     Indication: DRUG USE FOR UNKNOWN INDICATION
  6. ESBERIVEN [Concomitant]
     Indication: DRUG USE FOR UNKNOWN INDICATION
  7. POVIDONE [Concomitant]
     Indication: DRUG USE FOR UNKNOWN INDICATION
  8. ARNICA [Concomitant]
     Indication: DRUG USE FOR UNKNOWN INDICATION
  9. VISUDYNE [Concomitant]
     Indication: DRUG USE FOR UNKNOWN INDICATION

REACTIONS (1)
  - ARTHRALGIA [None]
